FAERS Safety Report 20081486 (Version 1)
Quarter: 2021Q4

REPORT INFORMATION
  Report Type: Spontaneous
  Country: US (occurrence: US)
  Receive Date: 20211117
  Receipt Date: 20211117
  Transmission Date: 20220303
  Serious: No
  Sender: FDA-Public Use
  Company Number: US-SA-SAC20211112001383

PATIENT
  Age: 66 Year
  Sex: Male

DRUGS (10)
  1. JEVTANA [Suspect]
     Active Substance: CABAZITAXEL
  2. TAXOTERE [Suspect]
     Active Substance: DOCETAXEL
     Dosage: UNK
  3. ELIGARD [Concomitant]
     Active Substance: LEUPROLIDE ACETATE
     Dosage: UNK
     Dates: start: 2017
  4. ENZALUTAMIDE [Concomitant]
     Active Substance: ENZALUTAMIDE
     Dosage: UNK
     Dates: start: 1019
  5. DUTASTERIDE [Concomitant]
     Active Substance: DUTASTERIDE
  6. BICALUTAMIDE [Concomitant]
     Active Substance: BICALUTAMIDE
  7. ABIRATERONE [Concomitant]
     Active Substance: ABIRATERONE
  8. PREDNISONE [Concomitant]
     Active Substance: PREDNISONE
  9. MITOXANTRONE [Concomitant]
     Active Substance: MITOXANTRONE HYDROCHLORIDE
  10. XGEVA [Concomitant]
     Active Substance: DENOSUMAB

REACTIONS (2)
  - Cancer pain [Unknown]
  - Drug intolerance [Unknown]
